FAERS Safety Report 4404206-7 (Version None)
Quarter: 2004Q3

REPORT INFORMATION
  Report Type: 
  Country: None (occurrence: None)
  Receive Date: 20040721
  Receipt Date: 20040721
  Transmission Date: 20050211
  Serious: No
  Sender: FDA-Public Use
  Company Number: None

PATIENT
  Age: 73 Year
  Sex: Male
  Weight: 53.8 kg

DRUGS (20)
  1. AZITHROMYCIN [Suspect]
     Dosage: 500 MG PO
     Route: 048
     Dates: start: 20040209, end: 20040217
  2. CEFTRIAXONE [Suspect]
     Dosage: 1 GM IV
     Route: 042
     Dates: start: 20040208, end: 20040217
  3. HYDRALAZINE [Concomitant]
  4. METRONIDAZOLE [Concomitant]
  5. ACETAMINOPHEN AND HYDROCODONE BITARTRATE [Concomitant]
  6. DIPHENHYDRAMINE [Concomitant]
  7. NEUTRA-PHOS POWDER [Concomitant]
  8. AMIODARONE HCL [Concomitant]
  9. IBUPROFEN [Concomitant]
  10. TEMAZEPAM [Concomitant]
  11. RANITIDINE [Concomitant]
  12. LISINOPRIL [Concomitant]
  13. FUROSEMIDE [Concomitant]
  14. SODIUM BICARBONATE [Concomitant]
  15. HEPARIN [Concomitant]
  16. DEXANETHASONE [Concomitant]
  17. AZITHROMYCIN [Concomitant]
  18. PHENYTOIN (DILANTIN) (SUST RELEASE) [Concomitant]
  19. DOCUSATE SOD [Concomitant]
  20. CEFTRIAXONE [Concomitant]

REACTIONS (1)
  - BACTERIA STOOL IDENTIFIED [None]
